FAERS Safety Report 8824940 (Version 2)
Quarter: 2015Q1

REPORT INFORMATION
  Report Type: Report from Study
  Country: US (occurrence: US)
  Receive Date: 20121004
  Receipt Date: 20150203
  Transmission Date: 20150721
  Serious: Yes (Death)
  Sender: FDA-Public Use
  Company Number: US-ROCHE-1136162

PATIENT
  Age: 87 Year
  Sex: Female

DRUGS (5)
  1. RITUXAN [Suspect]
     Active Substance: RITUXIMAB
     Indication: MYASTHENIA GRAVIS
     Route: 050
     Dates: start: 20010104
  2. FLUDARABINE [Concomitant]
     Active Substance: FLUDARABINE PHOSPHATE
     Route: 065
  3. RITUXAN [Suspect]
     Active Substance: RITUXIMAB
     Indication: APLASIA PURE RED CELL
     Route: 042
     Dates: start: 20010104, end: 20010220
  4. TYLENOL [Concomitant]
     Active Substance: ACETAMINOPHEN
     Route: 048
  5. BENADRYL [Concomitant]
     Active Substance: DIPHENHYDRAMINE HYDROCHLORIDE
     Route: 065

REACTIONS (6)
  - Anaemia [Unknown]
  - Platelet count decreased [Unknown]
  - Fatigue [Unknown]
  - Immune thrombocytopenic purpura [Unknown]
  - Disease progression [Fatal]
  - Haemoglobin decreased [Unknown]

NARRATIVE: CASE EVENT DATE: 20010215
